FAERS Safety Report 20374574 (Version 1)
Quarter: 2022Q1

REPORT INFORMATION
  Report Type: Report from Study
  Country: US (occurrence: US)
  Receive Date: 20220125
  Receipt Date: 20220125
  Transmission Date: 20220424
  Serious: Yes (Death, Hospitalization)
  Sender: FDA-Public Use
  Company Number: US-MYLANLABS-2022M1006896

PATIENT
  Sex: Female

DRUGS (2)
  1. CISPLATIN [Suspect]
     Active Substance: CISPLATIN
     Indication: Triple negative breast cancer
     Dosage: 75 MILLIGRAM/SQ. METER, CYCLE
     Route: 042
  2. ADAVOSERTIB [Suspect]
     Active Substance: ADAVOSERTIB
     Indication: Triple negative breast cancer
     Dosage: ADAVOSERTIB TWICE A DAY FOR 5 DOSES OVER 2.5 DAYS....
     Route: 048

REACTIONS (8)
  - Sepsis [Fatal]
  - Atrial fibrillation [Fatal]
  - Hypotension [Fatal]
  - Respiratory failure [Fatal]
  - Neutropenia [Recovering/Resolving]
  - Duodenitis [Unknown]
  - Lactic acidosis [Unknown]
  - Abdominal pain [Unknown]
